FAERS Safety Report 23547575 (Version 2)
Quarter: 2024Q2

REPORT INFORMATION
  Report Type: Spontaneous
  Country: US (occurrence: US)
  Receive Date: 20240221
  Receipt Date: 20240412
  Transmission Date: 20240715
  Serious: Yes (Hospitalization, Other)
  Sender: FDA-Public Use
  Company Number: US-HIKMA PHARMACEUTICALS USA INC.-US-H14001-24-01173

PATIENT
  Age: 63 Year
  Sex: Male

DRUGS (53)
  1. METHOTREXATE [Suspect]
     Active Substance: METHOTREXATE
     Indication: Immunosuppression
     Dosage: 15 MILLIGRAM, QD
     Route: 048
     Dates: start: 20230118
  2. METHOTREXATE [Suspect]
     Active Substance: METHOTREXATE
     Dosage: 15 MILLIGRAM, QD
     Route: 048
     Dates: start: 20230125
  3. METHOTREXATE [Suspect]
     Active Substance: METHOTREXATE
     Dosage: 15 MILLIGRAM, QD
     Route: 048
     Dates: start: 20230201
  4. METHOTREXATE [Suspect]
     Active Substance: METHOTREXATE
     Dosage: 15 MILLIGRAM, QD
     Route: 048
     Dates: start: 20230209
  5. METHOTREXATE [Suspect]
     Active Substance: METHOTREXATE
     Dosage: 15 MILLIGRAM, QD
     Route: 048
     Dates: start: 20230214
  6. METHOTREXATE [Suspect]
     Active Substance: METHOTREXATE
     Dosage: 15 MILLIGRAM, QD
     Route: 048
     Dates: start: 20230223
  7. METHOTREXATE [Suspect]
     Active Substance: METHOTREXATE
     Dosage: 15 MILLIGRAM, QD
     Route: 048
     Dates: start: 20230301
  8. METHOTREXATE [Suspect]
     Active Substance: METHOTREXATE
     Dosage: 15 MILLIGRAM, QD
     Route: 048
     Dates: start: 20230307
  9. METHOTREXATE [Suspect]
     Active Substance: METHOTREXATE
     Dosage: 15 MILLIGRAM, QD
     Route: 048
     Dates: start: 20230320
  10. METHOTREXATE [Suspect]
     Active Substance: METHOTREXATE
     Dosage: 15 MILLIGRAM, QD
     Route: 048
     Dates: start: 20230328
  11. METHOTREXATE [Suspect]
     Active Substance: METHOTREXATE
     Dosage: 15 MILLIGRAM, QD
     Route: 048
     Dates: start: 20230404
  12. METHOTREXATE [Suspect]
     Active Substance: METHOTREXATE
     Dosage: 15 MILLIGRAM, QD
     Route: 048
     Dates: start: 20230411
  13. METHOTREXATE [Suspect]
     Active Substance: METHOTREXATE
     Dosage: 15 MILLIGRAM, QD
     Route: 048
     Dates: start: 20230419
  14. METHOTREXATE [Suspect]
     Active Substance: METHOTREXATE
     Dosage: 15 MILLIGRAM, QD
     Route: 048
     Dates: start: 20230502
  15. METHOTREXATE [Suspect]
     Active Substance: METHOTREXATE
     Dosage: 15 MILLIGRAM, QD
     Route: 048
     Dates: start: 20230516
  16. METHOTREXATE [Suspect]
     Active Substance: METHOTREXATE
     Dosage: 15 MILLIGRAM, QD
     Route: 048
     Dates: start: 20230530
  17. METHOTREXATE [Suspect]
     Active Substance: METHOTREXATE
     Dosage: 15 MILLIGRAM, QD
     Route: 048
     Dates: start: 20230606
  18. METHOTREXATE [Suspect]
     Active Substance: METHOTREXATE
     Dosage: 15 MILLIGRAM, QD
     Route: 048
     Dates: start: 20230613
  19. METHOTREXATE [Suspect]
     Active Substance: METHOTREXATE
     Dosage: 15 MILLIGRAM, QD
     Route: 048
     Dates: start: 20230620
  20. METHOTREXATE [Suspect]
     Active Substance: METHOTREXATE
     Dosage: 15 MILLIGRAM, QD
     Route: 048
     Dates: start: 20230627
  21. METHOTREXATE [Suspect]
     Active Substance: METHOTREXATE
     Dosage: 15 MILLIGRAM, QD
     Route: 048
     Dates: start: 20230704
  22. METHOTREXATE [Suspect]
     Active Substance: METHOTREXATE
     Dosage: 15 MILLIGRAM, QD
     Route: 048
     Dates: start: 20230718
  23. METHOTREXATE [Suspect]
     Active Substance: METHOTREXATE
     Dosage: 15 MILLIGRAM
     Route: 048
     Dates: start: 20230711
  24. METHOTREXATE [Suspect]
     Active Substance: METHOTREXATE
     Indication: Gout
     Dosage: 7.5 MILLIGRAM, QD
     Route: 048
     Dates: start: 20230111
  25. PEGLOTICASE [Suspect]
     Active Substance: PEGLOTICASE
     Indication: Gout
     Dosage: 8 MILLIGRAM
     Route: 041
     Dates: start: 20230222, end: 20230222
  26. PEGLOTICASE [Suspect]
     Active Substance: PEGLOTICASE
     Dosage: 8 MILLIGRAM
     Route: 041
     Dates: start: 20230308, end: 20230308
  27. PEGLOTICASE [Suspect]
     Active Substance: PEGLOTICASE
     Dosage: 8 MILLIGRAM
     Route: 041
     Dates: start: 20230322, end: 20230322
  28. PEGLOTICASE [Suspect]
     Active Substance: PEGLOTICASE
     Dosage: 8 MILLIGRAM
     Route: 041
     Dates: start: 20230420, end: 20230420
  29. PEGLOTICASE [Suspect]
     Active Substance: PEGLOTICASE
     Dosage: 8 MILLIGRAM
     Route: 041
     Dates: start: 20230503, end: 20230503
  30. PEGLOTICASE [Suspect]
     Active Substance: PEGLOTICASE
     Dosage: 8 MILLIGRAM
     Route: 041
     Dates: start: 20230517, end: 20230517
  31. PEGLOTICASE [Suspect]
     Active Substance: PEGLOTICASE
     Dosage: 8 MILLIGRAM
     Route: 041
     Dates: start: 20230531, end: 20230531
  32. PEGLOTICASE [Suspect]
     Active Substance: PEGLOTICASE
     Dosage: 8 MILLIGRAM
     Route: 041
     Dates: start: 20230614, end: 20230614
  33. PEGLOTICASE [Suspect]
     Active Substance: PEGLOTICASE
     Dosage: 8 MILLIGRAM
     Route: 041
     Dates: start: 20230628, end: 20230628
  34. PEGLOTICASE [Suspect]
     Active Substance: PEGLOTICASE
     Dosage: 8 MILLIGRAM
     Route: 041
     Dates: start: 20230712, end: 20230712
  35. ALLOPURINOL [Concomitant]
     Active Substance: ALLOPURINOL
     Indication: Product used for unknown indication
     Dosage: UNK
     Route: 065
     Dates: start: 20230825, end: 20230830
  36. AMLODIPINE [Concomitant]
     Active Substance: AMLODIPINE BESYLATE
     Indication: Product used for unknown indication
     Route: 065
  37. ATORVASTATIN [Concomitant]
     Active Substance: ATORVASTATIN
     Indication: Product used for unknown indication
     Dosage: UNK
     Route: 065
     Dates: start: 20230825
  38. VICKS DAYQUIL [Concomitant]
     Active Substance: DEXTROMETHORPHAN HYDROBROMIDE\GUAIFENESIN
     Indication: Influenza
     Dosage: UNK
     Route: 065
     Dates: start: 20230308, end: 20230315
  39. ERGOCALCIFEROL [Concomitant]
     Active Substance: ERGOCALCIFEROL
     Indication: Product used for unknown indication
     Dosage: UNK
     Route: 065
     Dates: start: 20230825
  40. FEBUXOSTAT [Concomitant]
     Active Substance: FEBUXOSTAT
     Indication: Product used for unknown indication
     Dosage: UNK
     Route: 065
     Dates: start: 20230825
  41. FOLIC ACID [Concomitant]
     Active Substance: FOLIC ACID
     Indication: Product used for unknown indication
     Dosage: UNK
     Route: 065
     Dates: start: 20230111
  42. IBUPROFEN [Concomitant]
     Active Substance: IBUPROFEN
     Indication: Product used for unknown indication
     Dosage: UNK
     Route: 065
     Dates: start: 20230414
  43. INDOMETHACIN SODIUM [Concomitant]
     Active Substance: INDOMETHACIN SODIUM
     Indication: Product used for unknown indication
     Dosage: UNK
     Route: 065
     Dates: start: 20230123
  44. LEVOFLOXACIN [Concomitant]
     Active Substance: LEVOFLOXACIN
     Indication: Product used for unknown indication
     Route: 065
  45. LISINOPRIL [Concomitant]
     Active Substance: LISINOPRIL
     Indication: Product used for unknown indication
     Dosage: UNK
     Route: 065
     Dates: start: 20230825
  46. MEDROL [Concomitant]
     Active Substance: METHYLPREDNISOLONE
     Indication: Product used for unknown indication
     Dosage: UNK
     Route: 065
     Dates: start: 20230825
  47. METFORMIN [Concomitant]
     Active Substance: METFORMIN HYDROCHLORIDE
     Indication: Product used for unknown indication
     Dosage: UNK
     Route: 065
     Dates: start: 20230825
  48. METRONIDAZOLE [Concomitant]
     Active Substance: METRONIDAZOLE
     Indication: Small intestinal obstruction
     Dosage: 1000 MILLIGRAM
     Route: 065
     Dates: start: 20230505, end: 20230605
  49. MORPHINE [Concomitant]
     Active Substance: MORPHINE
     Indication: Small intestinal obstruction
     Dosage: 1000 MILLIGRAM
     Route: 042
     Dates: start: 20230505, end: 20230506
  50. OXYCODONE [Concomitant]
     Active Substance: OXYCODONE\OXYCODONE HYDROCHLORIDE
     Indication: Product used for unknown indication
     Dosage: UNK
     Route: 065
     Dates: start: 20230505, end: 20230509
  51. PANTOPRAZOLE [Concomitant]
     Active Substance: PANTOPRAZOLE
     Indication: Product used for unknown indication
     Dosage: UNK
     Route: 065
     Dates: start: 20230505, end: 20230509
  52. PROMETHAZINE [Concomitant]
     Active Substance: PROMETHAZINE HYDROCHLORIDE
     Indication: Product used for unknown indication
     Dosage: UNK
     Route: 065
     Dates: start: 20230505, end: 20230509
  53. ZOLPIDEM [Concomitant]
     Active Substance: ZOLPIDEM TARTRATE
     Indication: Product used for unknown indication
     Dosage: UNK
     Route: 065
     Dates: start: 20230505, end: 20230509

REACTIONS (12)
  - Small intestinal obstruction [Recovered/Resolved]
  - Hypertrophy [Unknown]
  - Liver disorder [Unknown]
  - Diverticulum [Unknown]
  - Abdominal pain lower [Unknown]
  - Chills [Unknown]
  - Hyperhidrosis [Unknown]
  - Nausea [Unknown]
  - Vomiting [Unknown]
  - Constipation [Unknown]
  - Hepatitis [Unknown]
  - Product dose omission issue [Unknown]

NARRATIVE: CASE EVENT DATE: 20230504
